FAERS Safety Report 8075449-9 (Version None)
Quarter: 2012Q1

REPORT INFORMATION
  Report Type: 
  Country: None (occurrence: None)
  Receive Date: 20120127
  Receipt Date: 20120126
  Transmission Date: 20120608
  Serious: Yes (Other)
  Sender: FDA-Public Use
  Company Number: US-BAYER-2012-008301

PATIENT
  Age: 22 Year
  Sex: Female

DRUGS (2)
  1. BETASERON [Suspect]
     Indication: RELAPSING-REMITTING MULTIPLE SCLEROSIS
     Dosage: UNK
     Dates: start: 20110104, end: 20110502
  2. BETASERON [Suspect]
     Dosage: 2 MIU, UNK
     Route: 058
     Dates: start: 20120112

REACTIONS (3)
  - VIRAL INFECTION [None]
  - VOMITING [None]
  - INJECTION SITE DISCOLOURATION [None]
